FAERS Safety Report 13160828 (Version 1)
Quarter: 2017Q1

REPORT INFORMATION
  Report Type: Spontaneous
  Country: US (occurrence: US)
  Receive Date: 20170130
  Receipt Date: 20170130
  Transmission Date: 20170428
  Serious: No
  Sender: FDA-Public Use
  Company Number: US-AMGEN-USASP2017012714

PATIENT
  Age: 38 Year
  Sex: Female

DRUGS (2)
  1. ENBREL [Suspect]
     Active Substance: ETANERCEPT
     Indication: PSORIATIC ARTHROPATHY
     Dosage: 50 MG, QWK
     Route: 065
     Dates: start: 20161227
  2. ENBREL [Suspect]
     Active Substance: ETANERCEPT
     Indication: CONNECTIVE TISSUE DISORDER

REACTIONS (4)
  - Rash [Unknown]
  - Off label use [Unknown]
  - Palpitations [Unknown]
  - Arthralgia [Unknown]

NARRATIVE: CASE EVENT DATE: 20161227
